FAERS Safety Report 14413550 (Version 3)
Quarter: 2018Q4

REPORT INFORMATION
  Report Type: Spontaneous
  Country: US (occurrence: US)
  Receive Date: 20180119
  Receipt Date: 20181219
  Transmission Date: 20190204
  Serious: Yes (Disabling, Other)
  Sender: FDA-Public Use
  Company Number: US-009507513-1801USA005273

PATIENT
  Age: 49 Year
  Sex: Female

DRUGS (8)
  1. ELMIRON [Concomitant]
     Active Substance: PENTOSAN POLYSULFATE SODIUM
  2. NOXAFIL [Suspect]
     Active Substance: POSACONAZOLE
     Indication: FUNGAL INFECTION
     Dosage: 600 MG, QD
     Route: 048
     Dates: start: 201704
  3. NOXAFIL [Suspect]
     Active Substance: POSACONAZOLE
     Dosage: 800 MG, QD
     Route: 048
     Dates: start: 2017, end: 201711
  4. PYRIDIUM [Concomitant]
     Active Substance: PHENAZOPYRIDINE
  5. SKELAXIN [Concomitant]
     Active Substance: METAXALONE
  6. LEVBID [Concomitant]
     Active Substance: HYOSCYAMINE SULFATE
  7. GABAPENTIN. [Concomitant]
     Active Substance: GABAPENTIN
  8. KLONOPIN [Concomitant]
     Active Substance: CLONAZEPAM

REACTIONS (38)
  - Transient ischaemic attack [Unknown]
  - Arthralgia [Recovering/Resolving]
  - Tooth disorder [Recovered/Resolved]
  - Loose tooth [Not Recovered/Not Resolved]
  - Cerebral disorder [Unknown]
  - Arthropod bite [Not Recovered/Not Resolved]
  - Cough [Not Recovered/Not Resolved]
  - Renal injury [Not Recovered/Not Resolved]
  - Eating disorder [Unknown]
  - Neck deformity [Not Recovered/Not Resolved]
  - Sleep disorder [Unknown]
  - Myalgia [Recovering/Resolving]
  - Sepsis [Not Recovered/Not Resolved]
  - Kidney infection [Unknown]
  - Joint swelling [Not Recovered/Not Resolved]
  - Back disorder [Not Recovered/Not Resolved]
  - Productive cough [Not Recovered/Not Resolved]
  - Dyspnoea [Not Recovered/Not Resolved]
  - Escherichia infection [Not Recovered/Not Resolved]
  - Renal failure [Not Recovered/Not Resolved]
  - Skin ulcer [Not Recovered/Not Resolved]
  - Weight decreased [Unknown]
  - Malaise [Not Recovered/Not Resolved]
  - Abdominal pain upper [Recovering/Resolving]
  - Chronic kidney disease [Not Recovered/Not Resolved]
  - Gene mutation [Unknown]
  - General symptom [Not Recovered/Not Resolved]
  - Lung disorder [Unknown]
  - Muscle atrophy [Unknown]
  - Immune system disorder [Unknown]
  - Pulmonary mass [Not Recovered/Not Resolved]
  - Drug ineffective [Not Recovered/Not Resolved]
  - Pyrexia [Unknown]
  - Fatigue [Not Recovered/Not Resolved]
  - Incorrect dose administered [Unknown]
  - Liver injury [Not Recovered/Not Resolved]
  - Aspergillus infection [Not Recovered/Not Resolved]
  - Spinal deformity [Not Recovered/Not Resolved]

NARRATIVE: CASE EVENT DATE: 2017
